FAERS Safety Report 5672099-6 (Version None)
Quarter: 2008Q1

REPORT INFORMATION
  Report Type: 
  Country: None (occurrence: None)
  Receive Date: 20080319
  Receipt Date: 20080307
  Transmission Date: 20080703
  Serious: Yes (Hospitalization)
  Sender: FDA-Public Use
  Company Number: IT-BAYER-200814429GPV

PATIENT
  Age: 73 Year
  Sex: Male

DRUGS (2)
  1. ASPIRINETTA (ACETYLSALICILYC ACID) [Suspect]
     Indication: PROPHYLAXIS
     Route: 048
     Dates: start: 20070101, end: 20080217
  2. VASORETIC (ENALAPRIL + HYDROCHLOROTHIAZIDE) [Concomitant]
     Indication: DRUG USE FOR UNKNOWN INDICATION
     Route: 048

REACTIONS (6)
  - ANAEMIA [None]
  - COLD SWEAT [None]
  - GASTRIC ULCER [None]
  - GASTROINTESTINAL HAEMORRHAGE [None]
  - HYPOTENSION [None]
  - MELAENA [None]
